FAERS Safety Report 9403138 (Version 1)
Quarter: 2013Q3

REPORT INFORMATION
  Report Type: Spontaneous
  Country: US (occurrence: US)
  Receive Date: 20130716
  Receipt Date: 20130716
  Transmission Date: 20140515
  Serious: Yes (Other)
  Sender: FDA-Public Use
  Company Number: US-ASTRAZENECA-2013SE51154

PATIENT
  Age: 57 Year
  Sex: Female
  Weight: 77.1 kg

DRUGS (6)
  1. NEXIUM [Suspect]
     Indication: GASTROOESOPHAGEAL REFLUX DISEASE
     Route: 048
     Dates: start: 201302
  2. ATORVASTATIN [Concomitant]
     Indication: BLOOD CHOLESTEROL ABNORMAL
     Dates: start: 201301
  3. PREMERIN [Concomitant]
     Indication: MENOPAUSE
     Dosage: 0.3 MG DAILY ON DAYS ONE TO TWELVE
     Dates: start: 2008
  4. PREMERIN [Concomitant]
     Indication: HOT FLUSH
     Dosage: 0.3 MG DAILY ON DAYS ONE TO TWELVE
     Dates: start: 2008
  5. PROMETRIUM [Concomitant]
     Indication: MENOPAUSE
     Dosage: 200 MG DAILY ON DAYS ONE TO TWELVE
     Dates: start: 2008
  6. PROMETRIUM [Concomitant]
     Indication: HOT FLUSH
     Dosage: 200 MG DAILY ON DAYS ONE TO TWELVE
     Dates: start: 2008

REACTIONS (4)
  - Atrioventricular block [Unknown]
  - Urinary tract infection [Unknown]
  - Extra dose administered [Unknown]
  - Off label use [Unknown]
